FAERS Safety Report 5587675-9 (Version None)
Quarter: 2007Q4

REPORT INFORMATION
  Report Type: 
  Country: None (occurrence: None)
  Receive Date: 20071206
  Receipt Date: 20070215
  Transmission Date: 20080405
  Serious: Yes (Hospitalization)
  Sender: FDA-Public Use
  Company Number: WAES 0702USA03176

PATIENT
  Sex: Female

DRUGS (2)
  1. CLINORIL [Suspect]
     Dosage: PO
     Route: 048
  2. ANALGESIC OR ANESTHETIC (UNSPECI [Concomitant]

REACTIONS (1)
  - DRUG SCREEN POSITIVE [None]
